FAERS Safety Report 25300991 (Version 1)
Quarter: 2025Q2

REPORT INFORMATION
  Report Type: Spontaneous
  Country: US (occurrence: US)
  Receive Date: 20250512
  Receipt Date: 20250512
  Transmission Date: 20250717
  Serious: No
  Sender: FRESENIUS KABI
  Company Number: US-FreseniusKabi-FK202506588

PATIENT
  Age: 67 Year
  Sex: Male
  Weight: 99.79 kg

DRUGS (2)
  1. OCTREOTIDE ACETATE [Suspect]
     Active Substance: OCTREOTIDE ACETATE
     Indication: Acromegaly
     Dosage: FORM OF ADMINISTRATION: INJECTION IN THE BELLY WITH 31 GAUGE INSULIN NEEDLE?TWO INJECTIONS PER DAY?1
     Route: 058
     Dates: start: 20250420
  2. LOSARTAN [Concomitant]
     Active Substance: LOSARTAN
     Indication: Product used for unknown indication

REACTIONS (1)
  - Injection site pain [Recovering/Resolving]

NARRATIVE: CASE EVENT DATE: 20250420
